FAERS Safety Report 19649897 (Version 1)
Quarter: 2021Q3

REPORT INFORMATION
  Report Type: Report from Study
  Country: BR (occurrence: BR)
  Receive Date: 20210802
  Receipt Date: 20210802
  Transmission Date: 20211014
  Serious: Yes (Death)
  Sender: FDA-Public Use
  Company Number: NVSC2021BR172352

PATIENT
  Age: 33 Year
  Sex: Female

DRUGS (2)
  1. TAFINLAR [Suspect]
     Active Substance: DABRAFENIB MESYLATE
     Indication: PRODUCT USED FOR UNKNOWN INDICATION
     Dosage: UNK, BID (AFTER 15 DEC 2019)
     Route: 065
     Dates: start: 20191215
  2. TRAMETINIB [Suspect]
     Active Substance: TRAMETINIB
     Indication: PRODUCT USED FOR UNKNOWN INDICATION
     Dosage: UNK, QD (AFTER 15 DEC 2019)
     Route: 065

REACTIONS (3)
  - Pyrexia [Unknown]
  - Disease progression [Fatal]
  - Condition aggravated [Unknown]

NARRATIVE: CASE EVENT DATE: 20200720
